APPROVED DRUG PRODUCT: IBUPROFEN
Active Ingredient: IBUPROFEN
Strength: 600MG
Dosage Form/Route: TABLET;ORAL
Application: A076112 | Product #002 | TE Code: AB
Applicant: DR REDDYS LABORATORIES INC
Approved: Oct 31, 2001 | RLD: No | RS: No | Type: RX